FAERS Safety Report 8394070-6 (Version None)
Quarter: 2012Q1

REPORT INFORMATION
  Report Type: 
  Country: None (occurrence: None)
  Receive Date: 20120323
  Receipt Date: 20110506
  Transmission Date: 20120608
  Serious: Yes (Other)
  Sender: FDA-Public Use
  Company Number: 163-21880-11050832

PATIENT
  Age: 80 Year
  Sex: Male

DRUGS (2)
  1. REVLIMID [Suspect]
     Indication: MULTIPLE MYELOMA
     Dosage: 20 MG, 1 IN 1 D, PO 15 MG, 1 IN 1 D, PO
     Route: 048
     Dates: start: 20100701
  2. REVLIMID [Suspect]
     Indication: MULTIPLE MYELOMA
     Dosage: 20 MG, 1 IN 1 D, PO 15 MG, 1 IN 1 D, PO
     Route: 048
     Dates: start: 20100101, end: 20100101

REACTIONS (1)
  - BLINDNESS [None]
